FAERS Safety Report 7190167-7 (Version None)
Quarter: 2010Q4

REPORT INFORMATION
  Report Type: 
  Country: None (occurrence: None)
  Receive Date: 20101223
  Receipt Date: 20101216
  Transmission Date: 20110411
  Serious: Yes (Hospitalization)
  Sender: FDA-Public Use
  Company Number: US-EISAI INC.-E7389-01060-CLI-US

PATIENT
  Sex: Male
  Weight: 73 kg

DRUGS (12)
  1. E7389 (BOLD) [Suspect]
     Indication: NON-SMALL CELL LUNG CANCER
     Route: 041
     Dates: start: 20101111
  2. TARCEVA [Suspect]
     Route: 048
     Dates: start: 20101112
  3. FERREX [Concomitant]
     Route: 048
     Dates: start: 20100415
  4. OXYCODONE [Concomitant]
     Route: 048
  5. MIRALAX [Concomitant]
     Route: 048
     Dates: start: 20100916
  6. MELATONIN [Concomitant]
     Route: 048
     Dates: start: 20100916
  7. MEGACE [Concomitant]
     Route: 048
     Dates: start: 20101012
  8. COLACE [Concomitant]
     Route: 048
     Dates: start: 20100427
  9. M.V.I. [Concomitant]
     Route: 065
  10. ZOMETA [Concomitant]
     Route: 065
  11. FUROSEMIDE [Concomitant]
     Route: 065
  12. PROCHLORPERAZINE [Concomitant]
     Route: 065

REACTIONS (2)
  - MUCOSAL INFLAMMATION [None]
  - SEPSIS [None]
